FAERS Safety Report 11971215 (Version 2)
Quarter: 2016Q1

REPORT INFORMATION
  Report Type: Spontaneous
  Country: US (occurrence: US)
  Receive Date: 20160128
  Receipt Date: 20160203
  Transmission Date: 20160526
  Serious: No
  Sender: FDA-Public Use
  Company Number: US-HORIZON-RAV-0011-2016

PATIENT
  Age: 3 Year
  Sex: Female
  Weight: 14 kg

DRUGS (4)
  1. ARGININE [Concomitant]
     Active Substance: ARGININE
  2. KEPPRA [Concomitant]
     Active Substance: LEVETIRACETAM
  3. DIASTAT [Concomitant]
     Active Substance: DIAZEPAM
  4. RAVICTI [Suspect]
     Active Substance: GLYCEROL PHENYLBUTYRATE
     Indication: ARGININOSUCCINATE SYNTHETASE DEFICIENCY
     Dosage: 1 ML THREE TIMES DAILY
     Dates: start: 20160101

REACTIONS (1)
  - Diarrhoea [Recovered/Resolved]

NARRATIVE: CASE EVENT DATE: 20160101
